FAERS Safety Report 8308605-2 (Version None)
Quarter: 2012Q2

REPORT INFORMATION
  Report Type: 
  Country: None (occurrence: None)
  Receive Date: 20120424
  Receipt Date: 20120412
  Transmission Date: 20120825
  Serious: Yes (Other)
  Sender: FDA-Public Use
  Company Number: US-MYLANLABS-2012S1007664

PATIENT
  Age: 71 Year
  Sex: Female

DRUGS (6)
  1. OMEPRAZOLE [Suspect]
     Route: 048
     Dates: start: 20120301, end: 20120401
  2. POTASSIUM CHLORIDE [Concomitant]
  3. LASIX [Concomitant]
  4. MOBIC [Concomitant]
  5. OMEPRAZOLE [Suspect]
     Route: 048
     Dates: start: 20111212, end: 20120101
  6. TRAMADOL HCL [Concomitant]

REACTIONS (3)
  - RECTAL HAEMORRHAGE [None]
  - VOMITING [None]
  - ABDOMINAL PAIN [None]
